FAERS Safety Report 7493106-4 (Version None)
Quarter: 2011Q2

REPORT INFORMATION
  Report Type: 
  Country: None (occurrence: None)
  Receive Date: 20110520
  Receipt Date: 20110510
  Transmission Date: 20111010
  Serious: Yes (Hospitalization)
  Sender: FDA-Public Use
  Company Number: US-ASTRAZENECA-2011SE28560

PATIENT
  Age: 906 Month
  Sex: Male

DRUGS (2)
  1. PLAVIX [Concomitant]
  2. CRESTOR [Suspect]
     Route: 048

REACTIONS (1)
  - SPINAL OPERATION [None]
